FAERS Safety Report 9050316 (Version 4)
Quarter: 2013Q2

REPORT INFORMATION
  Report Type: Report from Study
  Country: US (occurrence: US)
  Receive Date: 20130205
  Receipt Date: 20130627
  Transmission Date: 20140414
  Serious: Yes (Hospitalization, Other)
  Sender: FDA-Public Use
  Company Number: PHEH2013US002939

PATIENT
  Age: 63 Year
  Sex: Male
  Weight: 87.75 kg

DRUGS (6)
  1. GILENYA [Suspect]
     Indication: MULTIPLE SCLEROSIS
     Dosage: 0.5 MG, QD
     Route: 048
     Dates: start: 20110401
  2. PLAVIX [Concomitant]
     Dosage: 75 MG, QD
     Route: 048
  3. ASA [Concomitant]
     Dosage: 81 MG, QD
     Route: 048
  4. SIMVASTATIN [Concomitant]
     Dosage: 40 MG, QD
     Route: 048
  5. ENALAPRIL [Concomitant]
     Dosage: 5 MG, BID
     Route: 048
  6. PRAVASTATIN [Concomitant]
     Dosage: 40 MG, QHS
     Route: 048

REACTIONS (5)
  - Hip fracture [Recovered/Resolved]
  - Balance disorder [Recovering/Resolving]
  - Fall [Unknown]
  - Gait disturbance [Recovering/Resolving]
  - Cognitive disorder [Not Recovered/Not Resolved]
